FAERS Safety Report 8588615-0 (Version None)
Quarter: 2012Q3

REPORT INFORMATION
  Report Type: 
  Country: None (occurrence: None)
  Receive Date: 20120813
  Receipt Date: 20120806
  Transmission Date: 20120928
  Serious: Yes (Other)
  Sender: FDA-Public Use
  Company Number: PHHY2012MX069190

PATIENT
  Sex: Female

DRUGS (3)
  1. CALCIUM CARBONATE [Concomitant]
     Indication: OSTEOPOROSIS
     Dates: start: 20080101
  2. ZOLEDRONOC ACID [Suspect]
     Indication: OSTEOPOROSIS
     Dosage: 5 MG/100 ML EACH YEAR
     Route: 042
     Dates: start: 20110405
  3. EVOREL CONTI [Concomitant]
     Dates: start: 20100101

REACTIONS (5)
  - MELANOCYTIC NAEVUS [None]
  - INFLUENZA [None]
  - ARTHRALGIA [None]
  - FEELING ABNORMAL [None]
  - LETHARGY [None]
